FAERS Safety Report 6509064-2 (Version None)
Quarter: 2009Q4

REPORT INFORMATION
  Report Type: 
  Country: None (occurrence: None)
  Receive Date: 20091221
  Receipt Date: 20091217
  Transmission Date: 20100525
  Serious: Yes (Death, Hospitalization, Other)
  Sender: FDA-Public Use
  Company Number: SI-ABBOTT-09P-261-0614607-00

PATIENT
  Age: 66 Year
  Sex: Female

DRUGS (5)
  1. SEVOFLURANE [Suspect]
     Indication: DRUG USE FOR UNKNOWN INDICATION
  2. PROPOFOL [Concomitant]
     Indication: INDUCTION OF ANAESTHESIA
  3. SUFENTANIL CITRATE [Concomitant]
     Indication: INDUCTION OF ANAESTHESIA
  4. PANCURONIUM BROMIDE [Concomitant]
     Indication: ENDOTRACHEAL INTUBATION
  5. OXYGEN [Concomitant]
     Indication: MAINTENANCE OF ANAESTHESIA

REACTIONS (1)
  - SUBACUTE HEPATIC FAILURE [None]
